FAERS Safety Report 10247261 (Version 1)
Quarter: 2014Q2

REPORT INFORMATION
  Report Type: Spontaneous
  Country: US (occurrence: US)
  Receive Date: 20140619
  Receipt Date: 20140619
  Transmission Date: 20141212
  Serious: Yes (Death)
  Sender: FDA-Public Use
  Company Number: US-GLAXOSMITHKLINE-A1077728A

PATIENT
  Age: 85 Year
  Sex: Female

DRUGS (7)
  1. VOTRIENT [Suspect]
     Indication: METASTATIC NEOPLASM
     Dosage: 800MG PER DAY
     Route: 048
     Dates: start: 20140530
  2. VITAMIN D3 [Concomitant]
  3. LISINOPRIL [Concomitant]
  4. THYROID [Concomitant]
  5. METOPROLOL [Concomitant]
  6. ATORVASTATIN [Concomitant]
  7. ASPIRIN [Concomitant]

REACTIONS (1)
  - Death [Fatal]
